FAERS Safety Report 16976598 (Version 1)
Quarter: 2019Q4

REPORT INFORMATION
  Report Type: Spontaneous
  Country: FR (occurrence: FR)
  Receive Date: 20191030
  Receipt Date: 20191030
  Transmission Date: 20200122
  Serious: Yes (Life-Threatening, Hospitalization, Other)
  Sender: FDA-Public Use
  Company Number: FR-PFM-2019-13043

PATIENT

DRUGS (5)
  1. VALPROIC ACID. [Interacting]
     Active Substance: VALPROIC ACID
     Indication: PRODUCT USED FOR UNKNOWN INDICATION
     Dosage: 18.5G
     Route: 048
  2. PROPRANOLOL [Suspect]
     Active Substance: PROPRANOLOL HYDROCHLORIDE
     Indication: TOXICITY TO VARIOUS AGENTS
     Dosage: 400 MG, UNK
     Route: 048
  3. QUETIAPINE. [Interacting]
     Active Substance: QUETIAPINE
     Indication: PRODUCT USED FOR UNKNOWN INDICATION
     Dosage: 4 G, UNK
     Route: 048
  4. DIAZEPAM. [Suspect]
     Active Substance: DIAZEPAM
     Indication: PRODUCT USED FOR UNKNOWN INDICATION
     Dosage: 100 MG
     Route: 048
  5. ALPRAZOLAM. [Suspect]
     Active Substance: ALPRAZOLAM
     Indication: PRODUCT USED FOR UNKNOWN INDICATION
     Dosage: 20MG
     Route: 048

REACTIONS (11)
  - Off label use [Unknown]
  - Pneumonia aspiration [Unknown]
  - Hypotension [Unknown]
  - Condition aggravated [Recovering/Resolving]
  - Drug interaction [Unknown]
  - Blood creatine phosphokinase increased [Unknown]
  - Electrocardiogram QRS complex shortened [Unknown]
  - Toxicity to various agents [Unknown]
  - Coma [Recovering/Resolving]
  - Product use issue [Unknown]
  - Intentional overdose [Unknown]
